FAERS Safety Report 19817116 (Version 2)
Quarter: 2021Q4

REPORT INFORMATION
  Report Type: Spontaneous
  Country: US (occurrence: US)
  Receive Date: 20210910
  Receipt Date: 20211006
  Transmission Date: 20220303
  Serious: Yes (Other)
  Sender: FDA-Public Use
  Company Number: US-BAYER-2021-208392

PATIENT
  Age: 44 Year
  Sex: Female

DRUGS (3)
  1. MIRENA [Suspect]
     Active Substance: LEVONORGESTREL
     Indication: Contraception
     Dosage: 20 ?G, CONT
     Route: 015
     Dates: start: 201407, end: 20210730
  2. AZITHROMYCIN ANHYDROUS [Concomitant]
     Active Substance: AZITHROMYCIN ANHYDROUS
  3. ESTROGENS [Concomitant]
     Active Substance: ESTROGENS

REACTIONS (5)
  - Embedded device [None]
  - Complication of device removal [Recovered/Resolved]
  - Device use issue [None]
  - Device issue [None]
  - Amenorrhoea [None]

NARRATIVE: CASE EVENT DATE: 20210101
